FAERS Safety Report 9126899 (Version 1)
Quarter: 2013Q1

REPORT INFORMATION
  Report Type: Report from Study
  Country: CH (occurrence: CH)
  Receive Date: 20130228
  Receipt Date: 20130228
  Transmission Date: 20140127
  Serious: Yes (Hospitalization)
  Sender: FDA-Public Use
  Company Number: CH-BRISTOL-MYERS SQUIBB COMPANY-17404088

PATIENT
  Age: 80 Year
  Sex: Male

DRUGS (2)
  1. CETUXIMAB [Suspect]
     Indication: COLORECTAL CANCER METASTATIC
     Dosage: RECENT DOSE-30JAN13
     Route: 042
     Dates: start: 20130102, end: 20130130
  2. CAPECITABINE [Suspect]
     Indication: COLORECTAL CANCER METASTATIC
     Dosage: RECENT DOSE-06FEB13
     Route: 048
     Dates: start: 20130102, end: 20130206

REACTIONS (1)
  - Hiccups [Recovered/Resolved]
